FAERS Safety Report 8820079 (Version 4)
Quarter: 2013Q1

REPORT INFORMATION
  Report Type: Spontaneous
  Country: US (occurrence: US)
  Receive Date: 20121001
  Receipt Date: 20130219
  Transmission Date: 20140127
  Serious: No
  Sender: FDA-Public Use
  Company Number: US-009507513-1210USA000093

PATIENT
  Sex: Male

DRUGS (3)
  1. VICTRELIS [Suspect]
     Indication: HEPATITIS C
     Dosage: UNK
     Dates: start: 20120921, end: 20130130
  2. RIBAVIRIN [Suspect]
     Indication: HEPATITIS C
     Dosage: UNK
     Dates: start: 20120824, end: 20130130
  3. PEGASYS [Suspect]
     Indication: HEPATITIS C
     Dosage: UNK
     Dates: start: 20120824, end: 20130130

REACTIONS (15)
  - Productive cough [Unknown]
  - Dyspnoea [Unknown]
  - Fatigue [Unknown]
  - Vomiting [Unknown]
  - Chills [Unknown]
  - Headache [Unknown]
  - Drug ineffective [Unknown]
  - Nausea [Unknown]
  - Vomiting [Unknown]
  - Pyrexia [Unknown]
  - Influenza like illness [Unknown]
  - Vomiting [Unknown]
  - Headache [Unknown]
  - Dry mouth [Unknown]
  - Dizziness [Unknown]
